FAERS Safety Report 20007284 (Version 2)
Quarter: 2021Q4

REPORT INFORMATION
  Report Type: Spontaneous
  Country: US (occurrence: US)
  Receive Date: 20211028
  Receipt Date: 20211119
  Transmission Date: 20220303
  Serious: Yes (Hospitalization)
  Sender: FDA-Public Use
  Company Number: US-DRREDDYS-SPO/USA/21/0142947

PATIENT
  Age: 67 Year
  Sex: Female

DRUGS (1)
  1. GEMCITABINE [Suspect]
     Active Substance: GEMCITABINE
     Indication: Pancreatic carcinoma metastatic

REACTIONS (7)
  - Ventricular hypokinesia [Recovering/Resolving]
  - Sinus tachycardia [Recovering/Resolving]
  - Pleural effusion [Recovering/Resolving]
  - Cardiomyopathy acute [Recovering/Resolving]
  - Hypervolaemia [Recovering/Resolving]
  - Cardiotoxicity [Recovering/Resolving]
  - Pulmonary oedema [Recovering/Resolving]
